FAERS Safety Report 7216873-3 (Version None)
Quarter: 2010Q4

REPORT INFORMATION
  Report Type: 
  Country: None (occurrence: None)
  Receive Date: 20101229
  Receipt Date: 20101223
  Transmission Date: 20110411
  Serious: Yes (Other)
  Sender: FDA-Public Use
  Company Number: 2010SP066041

PATIENT
  Age: 69 Year
  Sex: Female

DRUGS (6)
  1. REMERON [Suspect]
     Indication: PRODUCT USED FOR UNKNOWN INDICATION
     Dosage: 15 MG; QD, 30 MG; QD
     Dates: start: 20100801
  2. ESCITALOPRAM OXALATE [Suspect]
     Indication: BIPOLAR DISORDER
     Dosage: 10 MG; PO, 10 MG
     Route: 048
     Dates: start: 20100501, end: 20100501
  3. ESCITALOPRAM OXALATE [Suspect]
     Indication: DEPRESSION
     Dosage: 10 MG; PO, 10 MG
     Route: 048
     Dates: start: 20100501, end: 20100501
  4. ESCITALOPRAM OXALATE [Suspect]
     Indication: BIPOLAR DISORDER
     Dosage: 10 MG; PO, 10 MG
     Route: 048
     Dates: start: 20101101
  5. ESCITALOPRAM OXALATE [Suspect]
     Indication: DEPRESSION
     Dosage: 10 MG; PO, 10 MG
     Route: 048
     Dates: start: 20101101
  6. SIMVASTATIN [Concomitant]

REACTIONS (1)
  - VARICOPHLEBITIS [None]
